APPROVED DRUG PRODUCT: DELESTROGEN
Active Ingredient: ESTRADIOL VALERATE
Strength: 10MG/ML
Dosage Form/Route: INJECTABLE;INJECTION
Application: N009402 | Product #002 | TE Code: AO
Applicant: PH HEALTH LTD
Approved: Approved Prior to Jan 1, 1982 | RLD: Yes | RS: Yes | Type: RX